FAERS Safety Report 6367477-6 (Version None)
Quarter: 2009Q3

REPORT INFORMATION
  Report Type: 
  Country: None (occurrence: None)
  Receive Date: 20090921
  Receipt Date: 20090914
  Transmission Date: 20100115
  Serious: Yes (Hospitalization)
  Sender: FDA-Public Use
  Company Number: B0594272A

PATIENT
  Sex: Female

DRUGS (1)
  1. LANOXIN [Suspect]
     Indication: CARDIAC FAILURE CHRONIC
     Dosage: .125MG PER DAY
     Route: 048
     Dates: start: 20090101, end: 20090824

REACTIONS (2)
  - CARDIOACTIVE DRUG LEVEL INCREASED [None]
  - SYNCOPE [None]
